FAERS Safety Report 17828594 (Version 1)
Quarter: 2020Q2

REPORT INFORMATION
  Report Type: Spontaneous
  Country: US (occurrence: US)
  Receive Date: 20200527
  Receipt Date: 20200527
  Transmission Date: 20200714
  Serious: Yes (Hospitalization, Other)
  Sender: FDA-Public Use
  Company Number: US-ASTRAZENECA-2020SE67914

PATIENT
  Sex: Female
  Weight: 113.4 kg

DRUGS (1)
  1. FASENRA [Suspect]
     Active Substance: BENRALIZUMAB
     Indication: WHITE BLOOD CELL COUNT INCREASED
     Route: 058
     Dates: start: 20190326

REACTIONS (7)
  - Oxygen saturation decreased [Unknown]
  - Cough [Unknown]
  - Dyspnoea [Unknown]
  - Therapy cessation [Unknown]
  - SARS-CoV-2 test negative [Unknown]
  - Nasal congestion [Unknown]
  - Upper-airway cough syndrome [Unknown]
